FAERS Safety Report 18600902 (Version 1)
Quarter: 2020Q4

REPORT INFORMATION
  Report Type: Spontaneous
  Country: FR (occurrence: FR)
  Receive Date: 20201210
  Receipt Date: 20201210
  Transmission Date: 20210114
  Serious: Yes (Death)
  Sender: FDA-Public Use
  Company Number: FR-MYLANLABS-2020M1100189

PATIENT
  Age: 69 Year
  Sex: Male
  Weight: 54 kg

DRUGS (11)
  1. OCTREOTIDE. [Concomitant]
     Active Substance: OCTREOTIDE
     Dosage: UNK
  2. NORADRENALINE MYLAN [Suspect]
     Active Substance: NOREPINEPHRINE\NOREPINEPHRINE BITARTRATE
     Indication: HAEMODYNAMIC INSTABILITY
     Dosage: 0.1 MILLILITER, QH
     Route: 042
     Dates: start: 20201025, end: 20201028
  3. LEVOTHYROXINE SODIQUE [Concomitant]
     Active Substance: LEVOTHYROXINE SODIUM
     Dosage: UNK
  4. ATORVASTATINE                      /01326101/ [Concomitant]
     Active Substance: ATORVASTATIN
     Dosage: UNK
  5. FUROSEMIDE. [Concomitant]
     Active Substance: FUROSEMIDE
     Dosage: UNK
  6. LOVENOX [Concomitant]
     Active Substance: ENOXAPARIN SODIUM
     Dosage: UNK
  7. METRONIDAZOLE B BRAUN [Suspect]
     Active Substance: METRONIDAZOLE
     Indication: SEPSIS
     Dosage: 500 MILLIGRAM, Q8H
     Route: 042
     Dates: start: 20201026, end: 20201028
  8. UMULINE [Concomitant]
     Active Substance: INSULIN HUMAN
     Dosage: UNK
  9. VANCOMYCIN SANDOZ [Suspect]
     Active Substance: VANCOMYCIN
     Indication: SEPSIS
     Dosage: 2000 MILLIGRAM, QD
     Route: 042
     Dates: start: 20201022, end: 20201027
  10. ASPEGIC                            /00002703/ [Concomitant]
     Active Substance: ASPIRIN DL-LYSINE
     Dosage: UNK
  11. SUFENTANIL MYLAN [Suspect]
     Active Substance: SUFENTANIL
     Indication: HAEMODYNAMIC INSTABILITY
     Dosage: 1 MILLILITER, QH
     Route: 042
     Dates: start: 20201024, end: 20201028

REACTIONS (1)
  - Acute kidney injury [Fatal]

NARRATIVE: CASE EVENT DATE: 20201026
